FAERS Safety Report 4620089-4 (Version None)
Quarter: 2005Q1

REPORT INFORMATION
  Report Type: 
  Country: None (occurrence: None)
  Receive Date: 20050328
  Receipt Date: 20050316
  Transmission Date: 20050727
  Serious: Yes (Other)
  Sender: FDA-Public Use
  Company Number: US-BRISTOL-MYERS SQUIBB COMPANY-12899944

PATIENT
  Age: 12 Year
  Sex: Male

DRUGS (2)
  1. ABILIFY [Suspect]
     Dosage: INITIATED AT 10 MG/DAY, INCREASED TO 20 MG/DAY, DISCONTINUED, THEN RESTARTED
  2. LITHIUM [Concomitant]

REACTIONS (1)
  - GILBERT'S SYNDROME [None]
